FAERS Safety Report 5816557-X (Version None)
Quarter: 2008Q3

REPORT INFORMATION
  Report Type: 
  Country: None (occurrence: None)
  Receive Date: 20080716
  Receipt Date: 20070607
  Transmission Date: 20090109
  Serious: Yes (Other)
  Sender: FDA-Public Use
  Company Number: US-JNJFOC-20070601954

PATIENT
  Age: 19 Year
  Sex: Female
  Weight: 49.8957 kg

DRUGS (1)
  1. MOTRIN IB [Suspect]
     Indication: MENSTRUAL DISORDER
     Dosage: 400 MG, 1IN 1 AS NECESSARY, ORAL
     Route: 048
     Dates: start: 19870101

REACTIONS (3)
  - ANXIETY [None]
  - HALLUCINATION, VISUAL [None]
  - NIGHTMARE [None]
